FAERS Safety Report 7607954-0 (Version None)
Quarter: 2011Q3

REPORT INFORMATION
  Report Type: 
  Country: None (occurrence: None)
  Receive Date: 20110712
  Receipt Date: 20110712
  Transmission Date: 20111222
  Serious: No
  Sender: FDA-Public Use
  Company Number: None

PATIENT
  Age: 77 Year
  Sex: Female
  Weight: 100.5 kg

DRUGS (1)
  1. TOVIAZ [Suspect]
     Indication: URINARY TRACT INFECTION

REACTIONS (1)
  - DRY MOUTH [None]
